FAERS Safety Report 17577120 (Version 1)
Quarter: 2020Q1

REPORT INFORMATION
  Report Type: Spontaneous
  Country: FR (occurrence: FR)
  Receive Date: 20200324
  Receipt Date: 20200324
  Transmission Date: 20200409
  Serious: Yes (Hospitalization, Other)
  Sender: FDA-Public Use
  Company Number: FR-PFIZER INC-2020123669

PATIENT
  Age: 65 Year
  Sex: Male
  Weight: 55 kg

DRUGS (5)
  1. RISEDRONATE ACCORD [Suspect]
     Active Substance: RISEDRONATE SODIUM
     Dosage: 1 DF, UNK
     Route: 048
     Dates: start: 202001, end: 20200128
  2. WELLVONE [Suspect]
     Active Substance: ATOVAQUONE
     Dosage: 1500 MG, 1X/DAY (REPORTED AS 2 DF)
     Route: 048
     Dates: start: 202001, end: 20200131
  3. ALDACTONE [Suspect]
     Active Substance: SPIRONOLACTONE
     Dosage: 25 MG, 1X/DAY
     Route: 048
     Dates: start: 202001
  4. SEROPLEX [Suspect]
     Active Substance: ESCITALOPRAM OXALATE
     Dosage: 1.5 DF, 1X/DAY
     Route: 048
     Dates: start: 202001
  5. CHOLURSO [Suspect]
     Active Substance: URSODIOL
     Dosage: UNK
     Route: 048
     Dates: start: 202001

REACTIONS (6)
  - Vomiting [Not Recovered/Not Resolved]
  - Hepatitis cholestatic [Not Recovered/Not Resolved]
  - Nausea [Not Recovered/Not Resolved]
  - Blood alkaline phosphatase increased [Not Recovered/Not Resolved]
  - Colitis [Not Recovered/Not Resolved]
  - Gamma-glutamyltransferase increased [Not Recovered/Not Resolved]

NARRATIVE: CASE EVENT DATE: 20200110
